FAERS Safety Report 6996469-9 (Version None)
Quarter: 2010Q3

REPORT INFORMATION
  Report Type: 
  Country: None (occurrence: None)
  Receive Date: 20100918
  Receipt Date: 20090309
  Transmission Date: 20110219
  Serious: No
  Sender: FDA-Public Use
  Company Number: US-WYE-H08524609

PATIENT
  Sex: Male

DRUGS (1)
  1. EFFEXOR [Suspect]
     Route: 048
     Dates: end: 20090223

REACTIONS (2)
  - DRUG WITHDRAWAL SYNDROME [None]
  - DYSPEPSIA [None]
